FAERS Safety Report 17470235 (Version 1)
Quarter: 2020Q1

REPORT INFORMATION
  Report Type: Spontaneous
  Country: GB (occurrence: GB)
  Receive Date: 20200227
  Receipt Date: 20200227
  Transmission Date: 20200409
  Serious: Yes (Other)
  Sender: FDA-Public Use
  Company Number: GB-CANTON LABORATORIES, LLC-2081049

PATIENT
  Age: 42 Year
  Sex: Female

DRUGS (2)
  1. COCODAMOL [Concomitant]
     Active Substance: ACETAMINOPHEN\CODEINE PHOSPHATE
     Route: 065
     Dates: start: 20191209, end: 20191214
  2. NAPROSYN [Suspect]
     Active Substance: NAPROXEN
     Indication: PRODUCT USED FOR UNKNOWN INDICATION
     Route: 065
     Dates: start: 20191209

REACTIONS (2)
  - Asthma [Unknown]
  - Wheezing [Recovered/Resolved]

NARRATIVE: CASE EVENT DATE: 20200131
